FAERS Safety Report 16016672 (Version 1)
Quarter: 2019Q1

REPORT INFORMATION
  Report Type: Spontaneous
  Country: FR (occurrence: FR)
  Receive Date: 20190228
  Receipt Date: 20190228
  Transmission Date: 20190418
  Serious: Yes (Death, Other)
  Sender: FDA-Public Use
  Company Number: FR-AUROBINDO-AUR-APL-2019-010693

PATIENT
  Age: 12 Year
  Sex: Female

DRUGS (2)
  1. SPIFEN [Suspect]
     Active Substance: IBUPROFEN
     Indication: INFLUENZA
     Dosage: UNK
     Route: 048
  2. PARACETAMOL [Suspect]
     Active Substance: ACETAMINOPHEN
     Indication: INFLUENZA
     Dosage: UNK
     Route: 048

REACTIONS (2)
  - Hyperkalaemia [Fatal]
  - Septic shock [Fatal]
